FAERS Safety Report 9772252 (Version 2)
Quarter: 2014Q1

REPORT INFORMATION
  Report Type: Spontaneous
  Country: ES (occurrence: ES)
  Receive Date: 20131219
  Receipt Date: 20140122
  Transmission Date: 20141002
  Serious: Yes (Death, Other)
  Sender: FDA-Public Use
  Company Number: ES-ASTELLAS-2013EU011169

PATIENT
  Age: 68 Year
  Sex: Male

DRUGS (7)
  1. ADVAGRAF [Suspect]
     Indication: IMMUNOSUPPRESSION
     Dosage: UNK
     Route: 065
  2. DEFLAZACORT [Concomitant]
     Dosage: UNK
     Route: 065
  3. MYCOPHENOLATE MOFETIL [Concomitant]
     Dosage: UNK
     Route: 065
  4. COTRIMOXAZOLE [Concomitant]
     Dosage: UNK
     Route: 065
  5. INSULIN [Concomitant]
     Dosage: UNK
     Route: 065
  6. IRON [Concomitant]
     Dosage: UNK
     Route: 065
  7. OMEPRAZOLE [Concomitant]
     Dosage: UNK
     Route: 065

REACTIONS (5)
  - Multi-organ failure [Fatal]
  - Necrosis [Unknown]
  - Scedosporium infection [Unknown]
  - Brain abscess [Unknown]
  - Neutropenia [Unknown]
